FAERS Safety Report 4873039-X (Version None)
Quarter: 2005Q4

REPORT INFORMATION
  Report Type: 
  Country: None (occurrence: None)
  Receive Date: 20051201
  Receipt Date: 20050813
  Transmission Date: 20060501
  Serious: No
  Sender: FDA-Public Use
  Company Number: 2005PV001225

PATIENT
  Age: 63 Year
  Sex: Female
  Weight: 97.5234 kg

DRUGS (13)
  1. BYETTA [Suspect]
     Indication: DIABETES MELLITUS NON-INSULIN-DEPENDENT
     Dosage: 5 MCG; BID; SC
     Route: 058
     Dates: start: 20050813
  2. GLIPIZIDE [Concomitant]
  3. AVANDIA [Concomitant]
  4. FERROUS SULFATE TAB [Concomitant]
  5. SYNTHROID [Concomitant]
  6. FUROSEMIDE [Concomitant]
  7. ENDUR-ACIN [Concomitant]
  8. TRANXENE [Concomitant]
  9. DOXEPIN [Concomitant]
  10. THERAGRAN M [Concomitant]
  11. VYTORIN [Concomitant]
  12. LISINOPRIL [Concomitant]
  13. NIACIN [Concomitant]

REACTIONS (8)
  - BLOOD GLUCOSE DECREASED [None]
  - BLOOD GLUCOSE INCREASED [None]
  - DECREASED APPETITE [None]
  - EAR INFECTION [None]
  - HEADACHE [None]
  - NAUSEA [None]
  - OTORRHOEA [None]
  - WEIGHT DECREASED [None]
